FAERS Safety Report 9802842 (Version 1)
Quarter: 2014Q1

REPORT INFORMATION
  Report Type: Spontaneous
  Country: US (occurrence: None)
  Receive Date: 20140103
  Receipt Date: 20140103
  Transmission Date: 20141002
  Serious: Yes (Hospitalization)
  Sender: FDA-Public Use
  Company Number: None

PATIENT
  Age: 69 Year
  Sex: Male

DRUGS (3)
  1. 5-FLUOROURACIL (5-FU) [Suspect]
     Dosage: 46 HOURS
  2. IRINOTECAN [Suspect]
     Dosage: OVER 90 MINUTES
  3. OXALIPLATIN (ELOXATIN) [Suspect]
     Dosage: INFUSED OVER 2 HOURS

REACTIONS (8)
  - Asthenia [None]
  - Decreased appetite [None]
  - Vomiting [None]
  - Confusional state [None]
  - Small intestinal obstruction [None]
  - Renal failure acute [None]
  - Diabetic ketoacidosis [None]
  - Clostridium difficile colitis [None]
